FAERS Safety Report 9699011 (Version 1)
Quarter: 2013Q4

REPORT INFORMATION
  Report Type: Spontaneous
  Country: PL (occurrence: PL)
  Receive Date: 20131120
  Receipt Date: 20131120
  Transmission Date: 20140711
  Serious: Yes (Hospitalization, Other)
  Sender: FDA-Public Use
  Company Number: PL-ELI_LILLY_AND_COMPANY-PL201311004112

PATIENT
  Age: 21 Year
  Sex: Female

DRUGS (5)
  1. HUMALOG LISPRO [Suspect]
     Indication: TYPE 1 DIABETES MELLITUS
     Dosage: 4 U, QD
     Route: 065
  2. HUMALOG LISPRO [Suspect]
     Dosage: 20 U, QD
     Route: 058
  3. HUMALOG LISPRO [Suspect]
     Dosage: 23 U, QD
     Route: 058
  4. INSULIN GLARGINE [Concomitant]
     Dosage: 14 U, QD
  5. INSULIN GLARGINE [Concomitant]
     Dosage: 12 U, QD

REACTIONS (8)
  - Diabetic ketoacidosis [Recovered/Resolved]
  - Diabetic ketoacidosis [Unknown]
  - Glycosylated haemoglobin increased [Unknown]
  - Blood glucose increased [Unknown]
  - Appendicitis [Unknown]
  - Hyperglycaemia [Unknown]
  - Glycosylated haemoglobin increased [Unknown]
  - Hypoglycaemia [Recovered/Resolved]
